FAERS Safety Report 10400235 (Version 1)
Quarter: 2014Q1

REPORT INFORMATION
  Report Type: Spontaneous
  Country: US (occurrence: None)
  Receive Date: 20130815
  Receipt Date: 20130815
  Transmission Date: 20141002
  Serious: Yes (Other)
  Sender: FDA-Public Use
  Company Number: ADR-2012-01274

PATIENT
  Sex: Female

DRUGS (2)
  1. LIORESAL INTRATHECAL (BACLOFEN INJECTION)2000MCG/ML [Suspect]
     Indication: CEREBRAL PALSY
  2. LIORESAL INTRATHECAL (BACLOFEN INJECTION)2000MCG/ML [Suspect]
     Indication: MUSCLE SPASTICITY

REACTIONS (8)
  - Drug withdrawal syndrome [None]
  - Pyrexia [None]
  - Agitation [None]
  - Mental status changes [None]
  - Irritability [None]
  - Nausea [None]
  - Vomiting [None]
  - Muscle spasticity [None]
